FAERS Safety Report 13760859 (Version 1)
Quarter: 2017Q3

REPORT INFORMATION
  Report Type: Spontaneous
  Country: US (occurrence: US)
  Receive Date: 20170717
  Receipt Date: 20170717
  Transmission Date: 20171127
  Serious: No
  Sender: FDA-Public Use
  Company Number: US-ALLERGAN-1000086783

PATIENT
  Age: 85 Year
  Sex: Female

DRUGS (1)
  1. NAMENDA XR [Suspect]
     Active Substance: MEMANTINE HYDROCHLORIDE
     Indication: PROPHYLAXIS
     Dosage: 28 MG, BID
     Route: 048
     Dates: start: 20160602

REACTIONS (2)
  - Intentional product misuse [Recovered/Resolved]
  - Confusional state [Not Recovered/Not Resolved]
